FAERS Safety Report 9790560 (Version 2)
Quarter: 2014Q1

REPORT INFORMATION
  Report Type: Spontaneous
  Country: US (occurrence: US)
  Receive Date: 20131231
  Receipt Date: 20140228
  Transmission Date: 20141002
  Serious: Yes (Hospitalization)
  Sender: FDA-Public Use
  Company Number: US-INCYTE CORPORATION-2013IN003108

PATIENT
  Sex: Female

DRUGS (2)
  1. JAKAFI [Suspect]
     Dosage: 5 MG, BID
     Route: 048
  2. JAKAFI [Suspect]
     Dosage: 15 MG, BID
     Route: 065

REACTIONS (1)
  - Fall [Unknown]
